FAERS Safety Report 17242558 (Version 8)
Quarter: 2020Q4

REPORT INFORMATION
  Report Type: Spontaneous
  Country: US (occurrence: US)
  Receive Date: 20200107
  Receipt Date: 20201113
  Transmission Date: 20210113
  Serious: Yes (Other)
  Sender: FDA-Public Use
  Company Number: US-SA-2020SA002173

PATIENT

DRUGS (1)
  1. FABRAZYME [Suspect]
     Active Substance: AGALSIDASE BETA
     Indication: FABRY^S DISEASE
     Dosage: 100 MG, QOW
     Route: 041
     Dates: start: 20191106

REACTIONS (8)
  - Oral mucosal eruption [Recovered/Resolved]
  - Type 2 diabetes mellitus [Unknown]
  - Arthralgia [Unknown]
  - Joint swelling [Unknown]
  - Rash [Recovered/Resolved]
  - Weight decreased [Unknown]
  - Urticaria [Unknown]
  - Pruritus [Unknown]

NARRATIVE: CASE EVENT DATE: 20191221
